FAERS Safety Report 18754302 (Version 6)
Quarter: 2023Q4

REPORT INFORMATION
  Report Type: Spontaneous
  Country: ES (occurrence: ES)
  Receive Date: 20210119
  Receipt Date: 20231121
  Transmission Date: 20240110
  Serious: Yes (Hospitalization)
  Sender: FDA-Public Use
  Company Number: ES-MERCK HEALTHCARE KGAA-9210950

PATIENT
  Age: 74 Year
  Sex: Male
  Weight: 76 kg

DRUGS (15)
  1. DOCETAXEL [Suspect]
     Active Substance: DOCETAXEL\DOCETAXEL ANHYDROUS
     Indication: Oesophageal carcinoma
     Dosage: 90 MILLIGRAM, CYCLICAL, ONCE IN EVERY TWO WEEKS
     Route: 042
     Dates: start: 20200722
  2. DOCETAXEL [Suspect]
     Active Substance: DOCETAXEL\DOCETAXEL ANHYDROUS
     Indication: Gastric cancer
     Dosage: 90 MILLIGRAM, CYCLICAL, ONCE IN EVERY TWO WEEKS
     Route: 042
     Dates: start: 20201229
  3. OXALIPLATIN [Suspect]
     Active Substance: OXALIPLATIN
     Indication: Oesophageal carcinoma
     Dosage: 150 MILLIGRAM, CYCLICAL, ONCE IN EVERY TWO WEEKS
     Route: 042
     Dates: start: 20200722
  4. OXALIPLATIN [Suspect]
     Active Substance: OXALIPLATIN
     Indication: Gastric cancer
     Dosage: 150 MILLIGRAM, CYCLICAL, ONCE IN EVERY TWO WEEKS
     Route: 042
     Dates: start: 20201229
  5. LEUCOVORIN CALCIUM [Suspect]
     Active Substance: LEUCOVORIN CALCIUM
     Indication: Oesophageal carcinoma
     Dosage: 720 MILLIGRAM, CYCLICAL, ONCE IN EVERY TWO WEEKS
     Route: 042
     Dates: start: 20200722
  6. LEUCOVORIN CALCIUM [Suspect]
     Active Substance: LEUCOVORIN CALCIUM
     Indication: Gastric cancer
     Dosage: 720 MILLIGRAM, CYCLICAL, ONCE IN EVERY TWO WEEKS
     Route: 042
     Dates: start: 20201229
  7. FLUOROURACIL [Suspect]
     Active Substance: FLUOROURACIL
     Indication: Oesophageal carcinoma
     Dosage: 4680 MILLIGRAM, CYCLICAL, ONCE IN EVERY TWO WEEKS
     Route: 042
     Dates: start: 20200722
  8. FLUOROURACIL [Suspect]
     Active Substance: FLUOROURACIL
     Indication: Gastric cancer
     Dosage: 4680 MILLIGRAM, CYCLICAL (ONCE IN EVERY TWO WEEKS)
     Route: 042
     Dates: start: 20201229
  9. FLUOROURACIL [Suspect]
     Active Substance: FLUOROURACIL
     Dosage: 4680 MILLIGRAM, CYCLICAL, ONCE IN EVERY TWO WEEKS
     Route: 042
     Dates: start: 20201230
  10. AVELUMAB [Concomitant]
     Active Substance: AVELUMAB
     Indication: Oesophageal carcinoma
     Dosage: 720 MILLIGRAM, CYCLICAL, ONCE IN EVERY TWO WEEKS
     Route: 042
     Dates: start: 20200722
  11. AVELUMAB [Concomitant]
     Active Substance: AVELUMAB
     Indication: Gastric cancer
     Dosage: 720 MILLIGRAM, CYCLICAL, ONCE IN EVERY TWO WEEKS
     Route: 042
     Dates: start: 20201229
  12. IRBESARTAN [Concomitant]
     Active Substance: IRBESARTAN
     Indication: Hypertension
     Dosage: 75 MILLIGRAM
     Route: 065
     Dates: start: 20200701
  13. METFORMIN [Concomitant]
     Active Substance: METFORMIN HYDROCHLORIDE
     Indication: Diabetes mellitus
     Dosage: 1000 MILLIGRAM
     Route: 065
     Dates: start: 20040101
  14. SITAGLIPTIN [Concomitant]
     Active Substance: SITAGLIPTIN
     Indication: Diabetes mellitus
     Dosage: 50 MILLIGRAM
     Route: 065
     Dates: start: 20040101
  15. SOLIFENACIN\TAMSULOSIN [Concomitant]
     Active Substance: SOLIFENACIN\TAMSULOSIN
     Indication: Benign prostatic hyperplasia
     Dosage: 6 MILLIGRAM
     Route: 065
     Dates: start: 20010101

REACTIONS (2)
  - Septic shock [Recovered/Resolved]
  - Pneumothorax [Recovered/Resolved]

NARRATIVE: CASE EVENT DATE: 20201230
